FAERS Safety Report 10511302 (Version 2)
Quarter: 2014Q4

REPORT INFORMATION
  Report Type: Spontaneous
  Country: GB (occurrence: GB)
  Receive Date: 20141010
  Receipt Date: 20141027
  Transmission Date: 20150528
  Serious: Yes (Other)
  Sender: FDA-Public Use
  Company Number: GB-WATSON-2014-21559

PATIENT
  Age: 42 Year
  Sex: Male
  Weight: 81 kg

DRUGS (5)
  1. PREDNISOLONE (UNKNOWN) [Suspect]
     Active Substance: PREDNISOLONE
     Indication: DERMATITIS ATOPIC
     Dosage: 5 MG, UNKNOWN
     Route: 048
     Dates: start: 20140615, end: 20140629
  2. BETNOVATE [Suspect]
     Active Substance: BETAMETHASONE
     Indication: DERMATITIS ATOPIC
     Dosage: UNK
     Route: 061
     Dates: start: 20000101, end: 20140716
  3. EPADERM [Concomitant]
     Indication: PRODUCT USED FOR UNKNOWN INDICATION
     Dosage: UNK
     Route: 065
  4. DERMOVATE [Suspect]
     Active Substance: CLOBETASOL
     Indication: DERMATITIS ATOPIC
     Dosage: UNK
     Route: 061
     Dates: start: 20000101, end: 20140716
  5. CETIRIZINE [Concomitant]
     Active Substance: CETIRIZINE HYDROCHLORIDE
     Indication: PRODUCT USED FOR UNKNOWN INDICATION
     Dosage: UNK
     Route: 065

REACTIONS (20)
  - Nipple disorder [Unknown]
  - Oedema peripheral [Unknown]
  - Increased appetite [Unknown]
  - Skin exfoliation [Unknown]
  - Food allergy [Unknown]
  - Nipple pain [Unknown]
  - Dyshidrotic eczema [Unknown]
  - Chills [Unknown]
  - Wound secretion [Unknown]
  - Withdrawal syndrome [Unknown]
  - Alopecia [Not Recovered/Not Resolved]
  - Lymphadenopathy [Unknown]
  - Libido decreased [Unknown]
  - Temperature regulation disorder [Unknown]
  - Pruritus generalised [Unknown]
  - Lip swelling [Unknown]
  - Erythema [Unknown]
  - Skin discolouration [Unknown]
  - Sleep disorder [Unknown]
  - Drug ineffective [Unknown]

NARRATIVE: CASE EVENT DATE: 20140716
